FAERS Safety Report 16072314 (Version 2)
Quarter: 2020Q2

REPORT INFORMATION
  Report Type: Spontaneous
  Country: US (occurrence: US)
  Receive Date: 20190314
  Receipt Date: 20200406
  Transmission Date: 20200713
  Serious: No
  Sender: FDA-Public Use
  Company Number: US-ALLERGAN-1849131US

PATIENT
  Age: 77 Year
  Sex: Female

DRUGS (2)
  1. ASACOL HD [Suspect]
     Active Substance: MESALAMINE
     Indication: CROHN^S DISEASE
  2. ASACOL HD [Suspect]
     Active Substance: MESALAMINE
     Indication: COLITIS ULCERATIVE
     Dosage: ACTUAL: AN HOUR BEFORE EATING
     Route: 048

REACTIONS (6)
  - Inappropriate schedule of product administration [Unknown]
  - Product dose omission [Unknown]
  - Drug monitoring procedure not performed [Unknown]
  - Incontinence [Unknown]
  - Rectal haemorrhage [Unknown]
  - Product use issue [Unknown]
